FAERS Safety Report 9549739 (Version 3)
Quarter: 2013Q4

REPORT INFORMATION
  Report Type: Report from Study
  Country: JP (occurrence: JP)
  Receive Date: 20130924
  Receipt Date: 20131025
  Transmission Date: 20140711
  Serious: No
  Sender: FDA-Public Use
  Company Number: JP-OTSUKA-JP-2013-13553

PATIENT
  Age: 94 Year
  Sex: Female

DRUGS (4)
  1. SAMSCA [Suspect]
     Indication: FLUID RETENTION
     Dosage: 15 MG MILLIGRAM(S), QAM
     Route: 048
     Dates: start: 20130802, end: 20130807
  2. LASIX [Concomitant]
     Indication: CARDIAC FAILURE
     Dosage: 40 MG MILLIGRAM(S), DAILY DOSE
     Route: 042
  3. TIEPENEM [Concomitant]
     Dosage: 1 G GRAM(S), DAILY DOSE
     Route: 041
  4. NIFEDIPINE [Concomitant]
     Dosage: 40 MG MILLIGRAM(S), DAILY DOSE
     Route: 048

REACTIONS (2)
  - Anaemia [Recovering/Resolving]
  - Liver disorder [Recovering/Resolving]
